FAERS Safety Report 10222458 (Version 1)
Quarter: 2014Q1

REPORT INFORMATION
  Report Type: Spontaneous
  Country: US (occurrence: None)
  Receive Date: 20140306
  Receipt Date: 20140306
  Transmission Date: 20141002
  Serious: Yes (Other)
  Sender: FDA-Public Use
  Company Number: 163-21880-13034333

PATIENT
  Age: 71 Year
  Sex: Female
  Weight: 50.8 kg

DRUGS (11)
  1. REVLIMID (LENALIDOMIDE) (15 MILLIGRAM, CAPSULES) [Suspect]
     Indication: PLASMA CELL MYELOMA
     Dosage: 15 MG, 1 IN 2 D, PO
     Route: 048
     Dates: start: 20121102, end: 20130320
  2. AMOXICILLIN (AMOXICILLIN) [Concomitant]
  3. ASPIRIN LOW DOSE (ACETYLSALICYLIC ACID) [Concomitant]
  4. BENADRYL (DIPHENHYDRAMINE HYDROCHLORIDE) [Concomitant]
  5. CALCIUM (CALCIUM) [Concomitant]
  6. CLARITHYROMYCIN (CLARITHROMYCIN) [Concomitant]
  7. IRON (IRON) [Concomitant]
  8. LANSOPRAZOLE (LANSOPRAZOLE) [Concomitant]
  9. METFORMIN HCL (METFORMIN HYDROCHLORIDE) [Concomitant]
  10. VELCADE (BORTEZOMIB) [Concomitant]
  11. FLAGYL (METRONIDAZOLE) [Concomitant]

REACTIONS (3)
  - Diarrhoea [None]
  - Weight decreased [None]
  - Hypophagia [None]
